FAERS Safety Report 10152294 (Version 3)
Quarter: 2014Q2

REPORT INFORMATION
  Report Type: Spontaneous
  Country: CA (occurrence: CA)
  Receive Date: 20140505
  Receipt Date: 20140609
  Transmission Date: 20141212
  Serious: Yes (Hospitalization)
  Sender: FDA-Public Use
  Company Number: CA-BAXTER-2014BAX020123

PATIENT
  Age: 78 Year
  Sex: Male

DRUGS (1)
  1. DIANEAL PD4 SOLUTION WITH 1.5% DEXTROSE AND 2.5 MEQ/L CALCIUM [Suspect]
     Indication: PERITONEAL DIALYSIS
     Route: 033

REACTIONS (6)
  - Gangrene [Unknown]
  - Postoperative wound infection [Unknown]
  - Injury [Unknown]
  - Limb injury [Unknown]
  - Fall [Unknown]
  - Peripheral swelling [Unknown]
